FAERS Safety Report 16138066 (Version 1)
Quarter: 2019Q2

REPORT INFORMATION
  Report Type: Spontaneous
  Country: US (occurrence: US)
  Receive Date: 20190330
  Receipt Date: 20190330
  Transmission Date: 20190711
  Serious: No
  Sender: FDA-Public Use
  Company Number: US-TEVA-2019-US-1031384

PATIENT
  Sex: Male

DRUGS (1)
  1. TESTOSTERONE CYPIONATE,200 MG / ML [Suspect]
     Active Substance: TESTOSTERONE CYPIONATE
     Dates: start: 2018

REACTIONS (3)
  - Headache [Unknown]
  - Product deposit [Unknown]
  - Product storage error [Unknown]
